FAERS Safety Report 8020967-2 (Version None)
Quarter: 2011Q4

REPORT INFORMATION
  Report Type: 
  Country: None (occurrence: None)
  Receive Date: 20111228
  Receipt Date: 20111220
  Transmission Date: 20120403
  Serious: Yes (Hospitalization, Disabling, Other)
  Sender: FDA-Public Use
  Company Number: AUR-APL-2011-05682

PATIENT
  Age: 81 Year
  Sex: Female

DRUGS (6)
  1. LEVOTHYROXINE SODIUM [Concomitant]
  2. CITALOPRAM HYDROBROMIDE [Concomitant]
  3. FLUCONAZOLE [Suspect]
     Indication: ANAL CANDIDIASIS
     Dosage: 50 MG, ORAL
     Route: 048
     Dates: start: 20111014, end: 20111016
  4. FLUCONAZOLE [Suspect]
     Indication: VULVOVAGINAL CANDIDIASIS
     Dosage: 50 MG, ORAL
     Route: 048
     Dates: start: 20111014, end: 20111016
  5. GALANTAMINE (GALANTAMINE) [Concomitant]
  6. SIMVASTATIN [Concomitant]

REACTIONS (4)
  - DEHYDRATION [None]
  - RENAL FAILURE [None]
  - APHAGIA [None]
  - ACUTE GENERALISED EXANTHEMATOUS PUSTULOSIS [None]
